FAERS Safety Report 17403276 (Version 5)
Quarter: 2021Q2

REPORT INFORMATION
  Report Type: Spontaneous
  Country: JP (occurrence: JP)
  Receive Date: 20200211
  Receipt Date: 20210408
  Transmission Date: 20210716
  Serious: Yes (Life-Threatening, Hospitalization, Other)
  Sender: FDA-Public Use
  Company Number: JP-TEVA-2020-JP-1184374

PATIENT
  Age: 50 Year
  Sex: Female

DRUGS (20)
  1. BENDAMUSTINE HYDROCHLORIDE. [Suspect]
     Active Substance: BENDAMUSTINE HYDROCHLORIDE
     Indication: EXTRANODAL MARGINAL ZONE B-CELL LYMPHOMA (MALT TYPE)
     Dosage: (1ST CYCLE)
     Route: 041
     Dates: start: 20180424, end: 20180425
  2. BENDAMUSTINE HYDROCHLORIDE. [Suspect]
     Active Substance: BENDAMUSTINE HYDROCHLORIDE
     Dosage: (3RD CYCLE)
     Route: 041
     Dates: start: 20180619, end: 20180620
  3. PREDNISOLONE. [Suspect]
     Active Substance: PREDNISOLONE
     Indication: SYSTEMIC LUPUS ERYTHEMATOSUS
     Route: 048
     Dates: start: 20180402
  4. CYCLOPHOSPHAMIDE. [Concomitant]
     Active Substance: CYCLOPHOSPHAMIDE
     Indication: PRODUCT USED FOR UNKNOWN INDICATION
     Route: 065
     Dates: start: 20180402
  5. BENDAMUSTINE HYDROCHLORIDE. [Suspect]
     Active Substance: BENDAMUSTINE HYDROCHLORIDE
     Dosage: (5TH CYCLE)
     Route: 041
     Dates: start: 20180828, end: 20180829
  6. BENDAMUSTINE HYDROCHLORIDE. [Suspect]
     Active Substance: BENDAMUSTINE HYDROCHLORIDE
     Dosage: (7TH CYCLE)
     Route: 041
     Dates: start: 20181023, end: 20181024
  7. HYDROXYCHLOROQUINE SULFATE. [Suspect]
     Active Substance: HYDROXYCHLOROQUINE SULFATE
     Indication: SYSTEMIC LUPUS ERYTHEMATOSUS
     Route: 065
  8. DOXORUBICIN HYDROCHLORIDE. [Concomitant]
     Active Substance: DOXORUBICIN HYDROCHLORIDE
     Indication: PRODUCT USED FOR UNKNOWN INDICATION
     Route: 041
     Dates: start: 20180402
  9. BENDAMUSTINE HYDROCHLORIDE. [Suspect]
     Active Substance: BENDAMUSTINE HYDROCHLORIDE
     Dosage: (2ND CYCLE)
     Route: 041
     Dates: start: 20180522, end: 20180523
  10. BENDAMUSTINE HYDROCHLORIDE. [Suspect]
     Active Substance: BENDAMUSTINE HYDROCHLORIDE
     Dosage: (6TH CYCLE)
     Route: 041
     Dates: start: 20180925, end: 20180926
  11. RITUXIMAB. [Suspect]
     Active Substance: RITUXIMAB
     Dosage: (5TH CYCLE)
     Route: 041
     Dates: start: 20180828
  12. RITUXIMAB. [Suspect]
     Active Substance: RITUXIMAB
     Dosage: (7TH CYCLE)
     Route: 041
     Dates: start: 20181023
  13. MYCOPHENOLATE MOFETIL. [Suspect]
     Active Substance: MYCOPHENOLATE MOFETIL
     Indication: SYSTEMIC LUPUS ERYTHEMATOSUS
     Route: 065
  14. RITUXIMAB. [Suspect]
     Active Substance: RITUXIMAB
     Indication: EXTRANODAL MARGINAL ZONE B-CELL LYMPHOMA (MALT TYPE)
     Dosage: (1ST CYCLE)
     Route: 041
     Dates: start: 20180424
  15. VINCRISTINE SULFATE. [Concomitant]
     Active Substance: VINCRISTINE SULFATE
     Indication: PRODUCT USED FOR UNKNOWN INDICATION
     Route: 041
     Dates: start: 20180402
  16. RITUXIMAB. [Suspect]
     Active Substance: RITUXIMAB
     Dosage: (3RD CYCLE)
     Route: 041
     Dates: start: 20180619
  17. RITUXIMAB. [Suspect]
     Active Substance: RITUXIMAB
     Dosage: (4TH CYCLE)
     Route: 041
     Dates: start: 20180731
  18. BENDAMUSTINE HYDROCHLORIDE. [Suspect]
     Active Substance: BENDAMUSTINE HYDROCHLORIDE
     Dosage: (4TH CYCLE)
     Route: 041
     Dates: start: 20180731, end: 20180801
  19. RITUXIMAB. [Suspect]
     Active Substance: RITUXIMAB
     Dosage: (2ND CYCLE)
     Route: 041
     Dates: start: 20180522
  20. RITUXIMAB. [Suspect]
     Active Substance: RITUXIMAB
     Dosage: (6TH CYCLE)
     Route: 041
     Dates: start: 20180925

REACTIONS (1)
  - Progressive multifocal leukoencephalopathy [Unknown]

NARRATIVE: CASE EVENT DATE: 201810
